FAERS Safety Report 4472640-5 (Version None)
Quarter: 2004Q4

REPORT INFORMATION
  Report Type: 
  Country: None (occurrence: None)
  Receive Date: 20041008
  Receipt Date: 20040922
  Transmission Date: 20050328
  Serious: Yes (Hospitalization)
  Sender: FDA-Public Use
  Company Number: DSA_25034_2004

PATIENT
  Age: 55 Year
  Sex: Male

DRUGS (3)
  1. TAVOR [Suspect]
     Dosage: 2 TAB ONCE PO
     Route: 048
     Dates: start: 20040917, end: 20040917
  2. MAREEN [Suspect]
     Dosage: 4300 MG ONCE PO
     Route: 048
     Dates: start: 20040917, end: 20040917
  3. SULPIRIDE [Suspect]
     Dosage: 2 TAB ONCE PO
     Route: 048
     Dates: start: 20040917, end: 20040917

REACTIONS (4)
  - DEPRESSED LEVEL OF CONSCIOUSNESS [None]
  - MULTIPLE DRUG OVERDOSE INTENTIONAL [None]
  - SOMNOLENCE [None]
  - TACHYCARDIA [None]
